FAERS Safety Report 17345781 (Version 1)
Quarter: 2020Q1

REPORT INFORMATION
  Report Type: Spontaneous
  Country: JP (occurrence: JP)
  Receive Date: 20200129
  Receipt Date: 20200129
  Transmission Date: 20200409
  Serious: Yes (Death, Other)
  Sender: FDA-Public Use
  Company Number: JP-PFIZER INC-2020031318

PATIENT
  Age: 70 Year
  Sex: Female
  Weight: 148 kg

DRUGS (7)
  1. IBRANCE [Suspect]
     Active Substance: PALBOCICLIB
     Indication: BREAST CANCER FEMALE
     Dosage: 75 MG, 1X/DAY
     Route: 048
     Dates: start: 20190904
  2. LUNESTA [Concomitant]
     Active Substance: ESZOPICLONE
     Dosage: 2 MG, 1X/DAY
  3. BIPERIDEN SAWAI [Concomitant]
     Dosage: 2 MG, 1X/DAY
  4. DENOTAS [Concomitant]
     Active Substance: CALCIUM CARBONATE\CHOLECALCIFEROL\MAGNESIUM CARBONATE
     Dosage: 2 DF, 1X/DAY
  5. REXULTI [Concomitant]
     Active Substance: BREXPIPRAZOLE
     Dosage: 1 MG, 1X/DAY
     Dates: start: 20191211
  6. ROZEX [METRONIDAZOLE] [Concomitant]
     Dosage: UNK UNK, 1X/DAY
     Route: 061
  7. CONTOMIN [CHLORPROMAZINE HIBENZATE] [Concomitant]
     Dosage: 40 MG, 1X/DAY

REACTIONS (10)
  - Blood creatine phosphokinase increased [Unknown]
  - Gait disturbance [Unknown]
  - Cardiac arrest [Fatal]
  - Oxygen saturation decreased [Unknown]
  - Blood urea increased [Unknown]
  - Circulatory collapse [Fatal]
  - Blood creatinine increased [Unknown]
  - Pneumonia [Fatal]
  - Interstitial lung disease [Fatal]
  - Respiratory arrest [Fatal]

NARRATIVE: CASE EVENT DATE: 20200120
